FAERS Safety Report 12291035 (Version 1)
Quarter: 2016Q2

REPORT INFORMATION
  Report Type: Spontaneous
  Country: HU (occurrence: HU)
  Receive Date: 20160421
  Receipt Date: 20160421
  Transmission Date: 20160815
  Serious: Yes (Other)
  Sender: FDA-Public Use
  Company Number: HU-BAYER-2016-074220

PATIENT
  Sex: Female
  Weight: 63 kg

DRUGS (3)
  1. NEXAVAR [Suspect]
     Active Substance: SORAFENIB
     Indication: THYROID CANCER
     Dosage: 400 MG, QD
     Route: 048
     Dates: start: 201407
  2. NEXAVAR [Suspect]
     Active Substance: SORAFENIB
     Indication: THYROID CANCER
     Dosage: 400 MG, BID
     Route: 048
  3. NEXAVAR [Suspect]
     Active Substance: SORAFENIB
     Indication: THYROID CANCER
     Dosage: 400 MG, BID
     Route: 048
     Dates: start: 20120220, end: 20131025

REACTIONS (8)
  - Thyroid cancer [None]
  - Alopecia [None]
  - Palmar-plantar erythrodysaesthesia syndrome [Recovered/Resolved]
  - Palmar-plantar erythrodysaesthesia syndrome [Recovered/Resolved]
  - Diarrhoea [Recovered/Resolved]
  - Diarrhoea [None]
  - Palmar-plantar erythrodysaesthesia syndrome [None]
  - Weight decreased [Recovered/Resolved]

NARRATIVE: CASE EVENT DATE: 201204
